FAERS Safety Report 5486962-2 (Version None)
Quarter: 2007Q4

REPORT INFORMATION
  Report Type: 
  Country: None (occurrence: None)
  Receive Date: 20071016
  Receipt Date: 20071005
  Transmission Date: 20080405
  Serious: Yes (Hospitalization, Other)
  Sender: FDA-Public Use
  Company Number: KE-GILEAD-2007-0013680

PATIENT
  Age: 24 Year
  Sex: Female
  Weight: 58.8 kg

DRUGS (6)
  1. TRUVADA [Suspect]
     Indication: HIV INFECTION
     Route: 048
     Dates: start: 20060929
  2. LOPINAVIR AND RITONAVIR [Suspect]
     Indication: HIV INFECTION
     Route: 048
     Dates: start: 20061107
  3. NEVIRAPINE [Suspect]
     Indication: HIV INFECTION
     Route: 048
     Dates: start: 20060929, end: 20061030
  4. VITACAP [Concomitant]
     Route: 065
  5. ZINACEF [Concomitant]
     Route: 042
  6. METRONIDAZOLE [Concomitant]
     Route: 042

REACTIONS (4)
  - CHORIOAMNIONITIS [None]
  - PREGNANCY [None]
  - PREMATURE LABOUR [None]
  - PREMATURE RUPTURE OF MEMBRANES [None]
